FAERS Safety Report 7304112-4 (Version None)
Quarter: 2011Q1

REPORT INFORMATION
  Report Type: 
  Country: None (occurrence: None)
  Receive Date: 20110221
  Receipt Date: 20110216
  Transmission Date: 20110831
  Serious: Yes (Death, Other)
  Sender: FDA-Public Use
  Company Number: PHHY2011TW12347

PATIENT
  Sex: Female
  Weight: 50 kg

DRUGS (2)
  1. NEORAL [Suspect]
     Indication: RENAL TRANSPLANT
     Dosage: 100 MG, QD
     Route: 048
     Dates: start: 20090525, end: 20100513
  2. NEORAL [Suspect]
     Indication: IMMUNOSUPPRESSION

REACTIONS (12)
  - HEPATIC CIRRHOSIS [None]
  - JAUNDICE [None]
  - BLOOD UREA INCREASED [None]
  - ASCITES [None]
  - AMMONIA INCREASED [None]
  - LOSS OF CONSCIOUSNESS [None]
  - BLOOD POTASSIUM DECREASED [None]
  - HAEMOGLOBIN DECREASED [None]
  - HEPATIC ENCEPHALOPATHY [None]
  - BLOOD CREATININE INCREASED [None]
  - BLOOD SODIUM DECREASED [None]
  - BLOOD GLUCOSE INCREASED [None]
